FAERS Safety Report 21088503 (Version 6)
Quarter: 2023Q4

REPORT INFORMATION
  Report Type: Report from Study
  Country: US (occurrence: US)
  Receive Date: 20220715
  Receipt Date: 20231020
  Transmission Date: 20240110
  Serious: Yes (Hospitalization)
  Sender: FDA-Public Use
  Company Number: US-TAKEDA-2022TUS047519

PATIENT
  Sex: Female

DRUGS (3)
  1. BRIGATINIB [Suspect]
     Active Substance: BRIGATINIB
     Indication: Metastases to lung
     Dosage: 90 MILLIGRAM, QD
     Route: 048
     Dates: start: 20220618
  2. BRIGATINIB [Suspect]
     Active Substance: BRIGATINIB
     Dosage: 180 MILLIGRAM, QD
     Route: 048
  3. BRIGATINIB [Suspect]
     Active Substance: BRIGATINIB
     Dosage: 180 MILLIGRAM, QD
     Route: 048

REACTIONS (12)
  - Dysgeusia [Unknown]
  - Feeding disorder [Unknown]
  - Pigmentation disorder [Unknown]
  - Dry throat [Unknown]
  - Cholelithiasis [Unknown]
  - Weight decreased [Unknown]
  - Swelling face [Not Recovered/Not Resolved]
  - Vomiting [Unknown]
  - Nausea [Unknown]
  - Muscle spasms [Unknown]
  - Decreased appetite [Unknown]
  - Asthenia [Unknown]
